FAERS Safety Report 6438144-5 (Version None)
Quarter: 2009Q4

REPORT INFORMATION
  Report Type: 
  Country: None (occurrence: None)
  Receive Date: 20091109
  Receipt Date: 20091026
  Transmission Date: 20100525
  Serious: Yes (Disabling)
  Sender: FDA-Public Use
  Company Number: 001609

PATIENT
  Age: 42 Year
  Sex: Male

DRUGS (2)
  1. VIMPAT [Suspect]
     Dosage: (200 MG QD ORAL)
     Route: 048
     Dates: start: 20090101
  2. PHENYTOIN [Suspect]

REACTIONS (2)
  - DRUG INTERACTION [None]
  - DRUG TOXICITY [None]
